FAERS Safety Report 6719479-5 (Version None)
Quarter: 2010Q2

REPORT INFORMATION
  Report Type: 
  Country: None (occurrence: None)
  Receive Date: 20100511
  Receipt Date: 20100507
  Transmission Date: 20101027
  Serious: Yes (Hospitalization)
  Sender: FDA-Public Use
  Company Number: IT-ROCHE-689816

PATIENT
  Sex: Female

DRUGS (2)
  1. VALIUM [Suspect]
     Indication: ANXIETY
     Dosage: DRUG: DIAZEPAM/VALIUM
     Route: 048
     Dates: start: 20100209, end: 20100209
  2. LEXOTAN [Suspect]
     Indication: ANXIETY
     Dosage: DRUG: BROMAZEPAM/LEXOTAN
     Route: 048
     Dates: start: 20100209, end: 20100209

REACTIONS (3)
  - DRUG ADMINISTRATION ERROR [None]
  - OVERDOSE [None]
  - PRESYNCOPE [None]
